FAERS Safety Report 11316781 (Version 4)
Quarter: 2015Q3

REPORT INFORMATION
  Report Type: Spontaneous
  Country: US (occurrence: US)
  Receive Date: 20150728
  Receipt Date: 20150910
  Transmission Date: 20151125
  Serious: Yes (Other)
  Sender: FDA-Public Use
  Company Number: US-PFIZER INC-2015249866

PATIENT
  Sex: Female

DRUGS (1)
  1. DEPO-PROVERA [Suspect]
     Active Substance: MEDROXYPROGESTERONE ACETATE
     Indication: CONTRACEPTION
     Dosage: 104 MG, EVERY THREE MONTHS (Q 3 MO)
     Route: 058
     Dates: start: 20131008

REACTIONS (6)
  - Skin mass [Unknown]
  - Injection site reaction [Unknown]
  - Injection site discolouration [Unknown]
  - Injection site haemorrhage [Unknown]
  - Product quality issue [Unknown]
  - Injection site pallor [Recovered/Resolved with Sequelae]
